FAERS Safety Report 8810144 (Version 1)
Quarter: 2012Q4

REPORT INFORMATION
  Report Type: 
  Country: US (occurrence: US)
  Receive Date: 20120926
  Receipt Date: 20120926
  Transmission Date: 20130627
  Serious: Yes (Other)
  Sender: FDA-Public Use
  Company Number: US-ASTRAZENECA-2012SE72479

PATIENT
  Age: 69 Year
  Sex: Male
  Weight: 124.7 kg

DRUGS (12)
  1. SYMBICORT [Suspect]
     Indication: CHRONIC OBSTRUCTIVE PULMONARY DISEASE
     Dosage: 160/4.5 MCG TWO PUFFS TWO TIMES A DAY
     Route: 055
     Dates: start: 201207, end: 20120916
  2. SYMBICORT [Suspect]
     Indication: LUNG DISORDER
     Dosage: 160/4.5 MCG TWO PUFFS TWO TIMES A DAY
     Route: 055
     Dates: start: 201207, end: 20120916
  3. SIMVASTATIN [Concomitant]
     Indication: BLOOD CHOLESTEROL ABNORMAL
     Route: 048
  4. DOXYCYCLINE [Concomitant]
     Indication: INGROWN HAIR
     Route: 048
  5. MELOXICAM [Concomitant]
     Indication: PAIN
     Dosage: 71/2 MG DAILY
     Route: 048
  6. BACLOFEN [Concomitant]
     Dosage: 10 MG ONE TO THREE TIMES A DAY
     Route: 048
  7. OXYCODONE [Concomitant]
     Indication: PAIN
     Route: 048
  8. GLUCOSAMINE [Concomitant]
     Indication: SUPPLEMENTATION THERAPY
     Route: 048
  9. ASPIRIN [Concomitant]
     Route: 048
  10. VITAMIN D3 [Concomitant]
     Route: 048
  11. FISH OIL [Concomitant]
     Route: 048
  12. SAW PALMETTO [Concomitant]

REACTIONS (4)
  - Vocal cord paralysis [Unknown]
  - Oropharyngeal pain [Unknown]
  - Pharyngeal disorder [Unknown]
  - Drug dose omission [Unknown]
